FAERS Safety Report 16054285 (Version 4)
Quarter: 2020Q1

REPORT INFORMATION
  Report Type: Spontaneous
  Country: US (occurrence: US)
  Receive Date: 20190308
  Receipt Date: 20200108
  Transmission Date: 20200409
  Serious: Yes (Hospitalization)
  Sender: FDA-Public Use
  Company Number: US-BAXTER-2019BAX004745

PATIENT
  Age: 60 Year
  Sex: Female
  Weight: 111.6 kg

DRUGS (18)
  1. FUROSEMIDE INJECTION USP [Suspect]
     Active Substance: FUROSEMIDE
     Indication: OEDEMA PERIPHERAL
     Route: 065
     Dates: start: 20190201, end: 20190203
  2. FUROSEMIDE INJECTION USP [Suspect]
     Active Substance: FUROSEMIDE
     Dosage: RE-DOSED PER RESPONSE
     Route: 042
     Dates: start: 201902, end: 20190210
  3. PREDNISONE. [Suspect]
     Active Substance: PREDNISONE
     Indication: PRODUCT USED FOR UNKNOWN INDICATION
     Route: 065
     Dates: start: 20180918
  4. IBUPROFEN. [Suspect]
     Active Substance: IBUPROFEN
     Indication: PRODUCT USED FOR UNKNOWN INDICATION
     Route: 065
  5. LISINOPRIL. [Suspect]
     Active Substance: LISINOPRIL
     Indication: PRODUCT USED FOR UNKNOWN INDICATION
     Route: 065
     Dates: start: 2016, end: 2019
  6. PREDNISONE. [Suspect]
     Active Substance: PREDNISONE
     Dosage: RESUMING HIGH DOSE STEROIDS (PREDNISONE)
     Route: 065
  7. TORSEMIDE. [Suspect]
     Active Substance: TORSEMIDE
     Route: 048
     Dates: start: 20190220
  8. IMMUNOGLOBULIN [IMMUNOGLOBULINS NOS] [Suspect]
     Active Substance: IMMUNE GLOBULIN NOS
     Indication: PRODUCT USED FOR UNKNOWN INDICATION
     Route: 042
     Dates: start: 20190201, end: 20190201
  9. SIROLIMUS. [Suspect]
     Active Substance: SIROLIMUS
     Dosage: RE-STARTED TREATMENT
     Route: 065
     Dates: start: 20190228
  10. PREDNISONE. [Suspect]
     Active Substance: PREDNISONE
     Dosage: TAPERING PREDNISONE
     Route: 065
  11. TORSEMIDE. [Suspect]
     Active Substance: TORSEMIDE
     Indication: PRODUCT USED FOR UNKNOWN INDICATION
     Dosage: RETURN TO TORSEMIDE FROM FUROSEMIDE
     Route: 048
     Dates: start: 20190210
  12. TORSEMIDE. [Suspect]
     Active Substance: TORSEMIDE
     Route: 048
     Dates: start: 20190215
  13. IBUPROFEN. [Suspect]
     Active Substance: IBUPROFEN
     Dosage: DOSE DECREASED
     Route: 065
  14. SIROLIMUS. [Suspect]
     Active Substance: SIROLIMUS
     Indication: CHRONIC GRAFT VERSUS HOST DISEASE
     Dosage: HOLDING SIROLIMUS FOR A MONTH
     Route: 048
     Dates: start: 20181009
  15. SIROLIMUS. [Suspect]
     Active Substance: SIROLIMUS
     Dosage: THE LAST DOSE OF SIROLIMUS PRIOR TO THE SAE WAS TAKEN ON 04FEB2019.
     Route: 048
     Dates: end: 20190204
  16. TORSEMIDE. [Suspect]
     Active Substance: TORSEMIDE
     Indication: OEDEMA PERIPHERAL
     Route: 065
     Dates: start: 201807
  17. FUROSEMIDE INJECTION USP [Suspect]
     Active Substance: FUROSEMIDE
     Indication: DIURETIC THERAPY
     Route: 042
     Dates: start: 20190206, end: 201902
  18. TORSEMIDE. [Suspect]
     Active Substance: TORSEMIDE
     Indication: DIURETIC THERAPY
     Route: 048
     Dates: start: 20190212

REACTIONS (5)
  - Condition aggravated [Recovered/Resolved]
  - Drug ineffective [Unknown]
  - Generalised oedema [Recovered/Resolved with Sequelae]
  - Acute kidney injury [Recovered/Resolved]
  - Alkalosis hypochloraemic [Recovering/Resolving]

NARRATIVE: CASE EVENT DATE: 201902
